FAERS Safety Report 18937150 (Version 1)
Quarter: 2021Q1

REPORT INFORMATION
  Report Type: Report from Study
  Country: BG (occurrence: BG)
  Receive Date: 20210224
  Receipt Date: 20210224
  Transmission Date: 20210420
  Serious: Yes (Death, Hospitalization, Other)
  Sender: FDA-Public Use
  Company Number: BG-BAYER-2021-003799

PATIENT
  Age: 66 Year
  Sex: Male

DRUGS (3)
  1. METHYLPREDNISOLONE. [Concomitant]
     Active Substance: METHYLPREDNISOLONE
  2. QUAMATEL [Concomitant]
     Active Substance: FAMOTIDINE
  3. STIVARGA [Suspect]
     Active Substance: REGORAFENIB
     Indication: COLORECTAL CANCER
     Dosage: 80 (2X40) MG DAILY
     Route: 048
     Dates: start: 20201007, end: 20210103

REACTIONS (7)
  - Jaundice [Fatal]
  - Ascites [Fatal]
  - Blood bilirubin increased [Fatal]
  - Colorectal cancer [None]
  - General physical health deterioration [Fatal]
  - Transaminases increased [Fatal]
  - Off label use [None]

NARRATIVE: CASE EVENT DATE: 202012
